FAERS Safety Report 11376750 (Version 8)
Quarter: 2016Q3

REPORT INFORMATION
  Report Type: Spontaneous
  Country: US (occurrence: US)
  Receive Date: 20150813
  Receipt Date: 20160923
  Transmission Date: 20161109
  Serious: Yes (Other)
  Sender: FDA-Public Use
  Company Number: US-GLAXOSMITHKLINE-US2015GSK116573

PATIENT
  Sex: Female
  Weight: 118 kg

DRUGS (15)
  1. LYRICA [Suspect]
     Active Substance: PREGABALIN
     Indication: NEUROPATHY PERIPHERAL
     Dosage: 100 MG, BID
     Route: 048
     Dates: start: 20100923
  2. METOPROLOL. [Concomitant]
     Active Substance: METOPROLOL
  3. ADVAIR DISKUS [Suspect]
     Active Substance: FLUTICASONE PROPIONATE\SALMETEROL XINAFOATE
     Indication: LUNG DISORDER
     Dosage: UNK
  4. LYRICA [Suspect]
     Active Substance: PREGABALIN
     Indication: DERMATITIS
  5. PANTOPRAZOLE [Concomitant]
     Active Substance: PANTOPRAZOLE SODIUM
  6. LISINOPRIL. [Concomitant]
     Active Substance: LISINOPRIL
  7. WARFARIN [Concomitant]
     Active Substance: WARFARIN
  8. ADVAIR DISKUS [Suspect]
     Active Substance: FLUTICASONE PROPIONATE\SALMETEROL XINAFOATE
     Dosage: UNK
  9. SPIRONOLACTONE. [Concomitant]
     Active Substance: SPIRONOLACTONE
  10. SIMVASTATIN. [Concomitant]
     Active Substance: SIMVASTATIN
  11. ADVAIR DISKUS [Suspect]
     Active Substance: FLUTICASONE PROPIONATE\SALMETEROL XINAFOATE
     Indication: WHEEZING
     Dosage: UNK UNK, BID
     Dates: start: 2008
  12. GLIPIZIDE. [Concomitant]
     Active Substance: GLIPIZIDE
  13. LANTUS [Concomitant]
     Active Substance: INSULIN GLARGINE
  14. ADVAIR DISKUS [Suspect]
     Active Substance: FLUTICASONE PROPIONATE\SALMETEROL XINAFOATE
     Dosage: UNK, BID
  15. FUROSEMIDE. [Concomitant]
     Active Substance: FUROSEMIDE

REACTIONS (11)
  - Gastric ulcer [Unknown]
  - Rash pustular [Unknown]
  - Expired product administered [Not Recovered/Not Resolved]
  - Cough [Unknown]
  - Skin ulcer [Not Recovered/Not Resolved]
  - Cardiac failure [Not Recovered/Not Resolved]
  - Vocal cord paralysis [Unknown]
  - Cardiac failure congestive [Unknown]
  - Gastrooesophageal reflux disease [Unknown]
  - Diabetes mellitus [Unknown]
  - Dyspnoea [Unknown]
